FAERS Safety Report 6906711-8 (Version None)
Quarter: 2010Q3

REPORT INFORMATION
  Report Type: 
  Country: None (occurrence: None)
  Receive Date: 20100708
  Receipt Date: 20090324
  Transmission Date: 20110219
  Serious: Yes (Other)
  Sender: FDA-Public Use
  Company Number: 2008095066

PATIENT
  Age: 37 Year
  Sex: Female
  Weight: 119.3 kg

DRUGS (6)
  1. CHANTIX [Suspect]
     Indication: SMOKING CESSATION THERAPY
     Dates: start: 20080101, end: 20080101
  2. CELEXA [Concomitant]
  3. ACETAMINOPHEN [Concomitant]
  4. ALEVE [Concomitant]
  5. FLEXERIL [Concomitant]
  6. LORAZEPAM [Concomitant]

REACTIONS (6)
  - INSOMNIA [None]
  - MALAISE [None]
  - MENTAL DISORDER [None]
  - SUICIDAL IDEATION [None]
  - THINKING ABNORMAL [None]
  - UNEVALUABLE EVENT [None]
